FAERS Safety Report 13191426 (Version 1)
Quarter: 2017Q1

REPORT INFORMATION
  Report Type: Spontaneous
  Country: US (occurrence: US)
  Receive Date: 20170206
  Receipt Date: 20170206
  Transmission Date: 20170428
  Serious: Yes (Life-Threatening, Hospitalization)
  Sender: FDA-Public Use
  Company Number: None

PATIENT
  Age: 66 Year
  Sex: Female
  Weight: 119.3 kg

DRUGS (15)
  1. TRAZODONE [Concomitant]
     Active Substance: TRAZODONE HYDROCHLORIDE
  2. CREAM [Concomitant]
     Active Substance: UNSPECIFIED INGREDIENT
  3. FLUTICASONE. [Concomitant]
     Active Substance: FLUTICASONE
  4. LISONPRIL [Concomitant]
     Active Substance: LISINOPRIL
  5. SIMVASTATIN. [Concomitant]
     Active Substance: SIMVASTATIN
  6. TAMSULOSIN [Concomitant]
     Active Substance: TAMSULOSIN
  7. EFFEXOR XR [Concomitant]
     Active Substance: VENLAFAXINE HYDROCHLORIDE
  8. LIDOCAINE PATCHES [Concomitant]
  9. NUCYNTA ER [Suspect]
     Active Substance: TAPENTADOL HYDROCHLORIDE
     Indication: PAIN
     Route: 048
     Dates: start: 20170202, end: 20170203
  10. KLOPIN [Concomitant]
  11. MIRALAX [Concomitant]
     Active Substance: POLYETHYLENE GLYCOL 3350
  12. LYRICA [Concomitant]
     Active Substance: PREGABALIN
  13. OXCARBAZEPINE. [Concomitant]
     Active Substance: OXCARBAZEPINE
  14. CAPSICISN [Concomitant]
  15. CLOBETASOL [Concomitant]
     Active Substance: CLOBETASOL

REACTIONS (6)
  - Weight decreased [None]
  - Acute kidney injury [None]
  - Confusional state [None]
  - Dizziness [None]
  - Hypotension [None]
  - Hypovolaemia [None]

NARRATIVE: CASE EVENT DATE: 20170203
